FAERS Safety Report 5392202-5 (Version None)
Quarter: 2007Q3

REPORT INFORMATION
  Report Type: 
  Country: None (occurrence: None)
  Receive Date: 20070717
  Receipt Date: 20070717
  Transmission Date: 20080115
  Serious: Yes (Hospitalization)
  Sender: FDA-Public Use
  Company Number: None

PATIENT
  Age: 58 Year
  Sex: Female

DRUGS (6)
  1. SEROQUEL [Suspect]
     Indication: DEPRESSION
     Dosage: 200 MG  AT BEDTIME  PO
     Route: 048
  2. PRILOSEC [Concomitant]
  3. VERAPAMIL EXTENDED-RELEASE [Concomitant]
  4. HYDROCHLOROTHIAZIDE [Concomitant]
  5. KLONOPIN [Concomitant]
  6. XANAX [Concomitant]

REACTIONS (5)
  - ADVERSE DRUG REACTION [None]
  - ARTHRALGIA [None]
  - DYSPNOEA EXERTIONAL [None]
  - FATIGUE [None]
  - PYREXIA [None]
